FAERS Safety Report 9848071 (Version 1)
Quarter: 2013Q4

REPORT INFORMATION
  Report Type: Spontaneous
  Country: US (occurrence: None)
  Receive Date: 20131223
  Receipt Date: 20131223
  Transmission Date: 20140711
  Serious: No
  Sender: FDA-Public Use
  Company Number: CABO-13003562

PATIENT
  Age: 67 Year
  Sex: Female

DRUGS (12)
  1. COMETRIQ (CABOZANTINIB) CAPSULE [Suspect]
     Indication: THYROID CANCER
     Route: 048
     Dates: start: 2013, end: 2013
  2. SYNTHROID (LEVOTHYROXINE SODIUM) [Concomitant]
  3. AMBIEN (ZOLPIDEM TARTRATE) [Concomitant]
  4. AMOXICILLIN (AMOXICILLIN SODIUM) [Concomitant]
  5. AUGMENTIN (AMOXICILLIN TRIHYDRATE, CLAVULANATE POTASSIUM) [Concomitant]
  6. CALCIUM (CALCIUM CARBONATE) [Concomitant]
  7. HYDROCODONE (HYDROCODONE BITARTRATE) [Concomitant]
  8. CEFUROXIME (CEFUROXIME AXETIL) [Concomitant]
  9. AXETIL (CEFUROXIME AXETIL) [Concomitant]
  10. POTASSIUM (POTASSIUM BICARBONATE, POTASSIUM BITARTRATE) [Concomitant]
  11. IBUPROFEN (IBUPROFEN SODIUM) [Concomitant]
  12. LOMUSTINE (LOMUSTINE) [Concomitant]

REACTIONS (1)
  - Bronchitis [None]
